FAERS Safety Report 4360433-9 (Version None)
Quarter: 2004Q2

REPORT INFORMATION
  Report Type: 
  Country: None (occurrence: None)
  Receive Date: 20040514
  Receipt Date: 20040507
  Transmission Date: 20050107
  Serious: No
  Sender: FDA-Public Use
  Company Number: TAP2004Q00561

PATIENT
  Sex: Female

DRUGS (2)
  1. LUPRON DEPOT-3 [Suspect]
     Dosage: 3.75 MG,
  2. NUMEROUS UNSPECIFIED MEDICATIONS [Suspect]

REACTIONS (2)
  - GLOMERULONEPHRITIS [None]
  - POST PROCEDURAL COMPLICATION [None]
